FAERS Safety Report 16787504 (Version 1)
Quarter: 2019Q3

REPORT INFORMATION
  Report Type: Spontaneous
  Country: US (occurrence: US)
  Receive Date: 20190718
  Receipt Date: 20190718
  Transmission Date: 20191005
  Serious: No
  Sender: FDA-Public Use
  Company Number: None

PATIENT
  Age: 26 Year
  Sex: Female

DRUGS (4)
  1. COPAXONE [Suspect]
     Active Substance: GLATIRAMER ACETATE
     Indication: MULTIPLE SCLEROSIS
     Dosage: ?          OTHER FREQUENCY:OTHER;?
     Route: 058
     Dates: start: 20190621
  2. VITAMIN D [Concomitant]
     Active Substance: VITAMIN D NOS
  3. HYDROCHLOROTHIAZIDE. [Suspect]
     Active Substance: HYDROCHLOROTHIAZIDE
  4. IBURPROFEN [Concomitant]

REACTIONS (3)
  - Headache [None]
  - Road traffic accident [None]
  - Neck pain [None]

NARRATIVE: CASE EVENT DATE: 20190718
